FAERS Safety Report 10337860 (Version 1)
Quarter: 2014Q3

REPORT INFORMATION
  Report Type: Spontaneous
  Country: US (occurrence: None)
  Receive Date: 20140722
  Receipt Date: 20140722
  Transmission Date: 20150326
  Serious: Yes (Death, Life-Threatening, Disabling, Other)
  Sender: FDA-Public Use
  Company Number: None

PATIENT
  Age: 76 Year
  Sex: Male
  Weight: 105 kg

DRUGS (4)
  1. KCENTRA [Suspect]
     Active Substance: COAGULATION FACTOR IX HUMAN\COAGULATION FACTOR VII HUMAN\COAGULATION FACTOR X HUMAN\PROTEIN C\PROTEIN S HUMAN\PROTHROMBIN
     Indication: SUBDURAL HAEMATOMA
     Dosage: 2100 UNITS (~25 MG/KG)
     Route: 042
     Dates: start: 20140611
  2. HEPARIN [Concomitant]
     Active Substance: HEPARIN SODIUM
  3. KCENTRA [Suspect]
     Active Substance: COAGULATION FACTOR IX HUMAN\COAGULATION FACTOR VII HUMAN\COAGULATION FACTOR X HUMAN\PROTEIN C\PROTEIN S HUMAN\PROTHROMBIN
     Indication: HAEMORRHAGE INTRACRANIAL
     Dosage: 2100 UNITS (~25 MG/KG)
     Route: 042
     Dates: start: 20140611
  4. KCENTRA [Suspect]
     Active Substance: COAGULATION FACTOR IX HUMAN\COAGULATION FACTOR VII HUMAN\COAGULATION FACTOR X HUMAN\PROTEIN C\PROTEIN S HUMAN\PROTHROMBIN
     Indication: SUBARACHNOID HAEMORRHAGE
     Dosage: 2100 UNITS (~25 MG/KG)
     Route: 042
     Dates: start: 20140611

REACTIONS (5)
  - Heparin-induced thrombocytopenia [None]
  - Cerebral ischaemia [None]
  - Cerebral infarction [None]
  - Deep vein thrombosis [None]
  - Brain oedema [None]

NARRATIVE: CASE EVENT DATE: 20140611
